FAERS Safety Report 20383892 (Version 4)
Quarter: 2022Q2

REPORT INFORMATION
  Report Type: Report from Study
  Country: IT (occurrence: IT)
  Receive Date: 20220127
  Receipt Date: 20220405
  Transmission Date: 20220721
  Serious: Yes (Hospitalization)
  Sender: FDA-Public Use
  Company Number: IT-KOREA IPSEN Pharma-2022-01563

PATIENT
  Age: 80 Year
  Sex: Male
  Weight: 96 kg

DRUGS (5)
  1. CABOZANTINIB [Suspect]
     Active Substance: CABOZANTINIB
     Indication: Renal cell carcinoma
     Dosage: 40 MG, QD
     Route: 048
     Dates: start: 20210225, end: 20210425
  2. CABOZANTINIB [Suspect]
     Active Substance: CABOZANTINIB
     Dosage: 40 MG, FIVE DAYS ON/TWO DAYS OFF
     Route: 048
     Dates: start: 20210601, end: 20210613
  3. CABOZANTINIB [Suspect]
     Active Substance: CABOZANTINIB
     Dosage: 26 MG, NINE DAYS ON/FIVE DAYS OFF
     Route: 048
     Dates: start: 20210614, end: 20210708
  4. CABOZANTINIB [Suspect]
     Active Substance: CABOZANTINIB
     Dosage: 20 MG, QD
     Route: 048
     Dates: start: 20210727, end: 20211117
  5. CABOZANTINIB [Suspect]
     Active Substance: CABOZANTINIB
     Dosage: 20 MG, QD
     Route: 048
     Dates: start: 20211125, end: 20211215

REACTIONS (2)
  - Cardiac failure congestive [Recovered/Resolved with Sequelae]
  - Pneumonia [Recovered/Resolved]

NARRATIVE: CASE EVENT DATE: 20211227
